FAERS Safety Report 5619847-9 (Version None)
Quarter: 2008Q1

REPORT INFORMATION
  Report Type: 
  Country: None (occurrence: None)
  Receive Date: 20080208
  Receipt Date: 20080129
  Transmission Date: 20080703
  Serious: Yes (Hospitalization, Other)
  Sender: FDA-Public Use
  Company Number: JP-NOVOPROD-271605

PATIENT
  Age: 1 Month
  Sex: Male
  Weight: 2.4 kg

DRUGS (1)
  1. GLUCAGEN [Suspect]
     Dosage: 43 PG/KG/HR, QD
     Route: 042
     Dates: start: 20071228, end: 20080112

REACTIONS (2)
  - HEPATIC FUNCTION ABNORMAL [None]
  - JAUNDICE CHOLESTATIC [None]
